FAERS Safety Report 24589470 (Version 2)
Quarter: 2024Q4

REPORT INFORMATION
  Report Type: Spontaneous
  Country: US (occurrence: US)
  Receive Date: 20241107
  Receipt Date: 20241118
  Transmission Date: 20250114
  Serious: Yes (Hospitalization)
  Sender: INCYTE
  Company Number: US-INCYTE CORPORATION-2024IN011654

PATIENT

DRUGS (2)
  1. JAKAFI [Suspect]
     Active Substance: RUXOLITINIB
     Indication: Juvenile idiopathic arthritis
     Dosage: 7.5 MILLIGRAM, BID (1.5 X 5MG TABLETS AT THE SAME TIME EACH DAY)
     Route: 048
     Dates: start: 20240730
  2. KINERET [Concomitant]
     Active Substance: ANAKINRA
     Indication: Product used for unknown indication
     Dosage: 100 MILLIGRAM, QD
     Route: 065

REACTIONS (3)
  - Iron deficiency [Unknown]
  - Wrong technique in product usage process [Unknown]
  - Off label use [Unknown]

NARRATIVE: CASE EVENT DATE: 20240730
